FAERS Safety Report 9616678 (Version 1)
Quarter: 2013Q4

REPORT INFORMATION
  Report Type: Spontaneous
  Country: US (occurrence: US)
  Receive Date: 20131011
  Receipt Date: 20131011
  Transmission Date: 20140711
  Serious: No
  Sender: FDA-Public Use
  Company Number: US-PURDUE-USA-2013-0099728

PATIENT
  Sex: Male

DRUGS (2)
  1. BUTRANS [Suspect]
     Indication: PAIN
     Dosage: 15 MCG/HR (10MCG AND 5MCG SIMULTANEOUSLY)
     Route: 062
  2. BUTRANS [Suspect]
     Dosage: 20 MCG/HR, UNK
     Route: 062

REACTIONS (4)
  - Extra dose administered [Recovered/Resolved]
  - Drug administered at inappropriate site [Unknown]
  - Sedation [Recovered/Resolved]
  - Drug ineffective [Unknown]
